FAERS Safety Report 5134926-0 (Version None)
Quarter: 2006Q4

REPORT INFORMATION
  Report Type: 
  Country: None (occurrence: None)
  Receive Date: 20061019
  Receipt Date: 20060929
  Transmission Date: 20070319
  Serious: Yes (Other)
  Sender: FDA-Public Use
  Company Number: 2006SP003484

PATIENT
  Age: 28 Year
  Sex: Male

DRUGS (7)
  1. PEG-INTRON [Suspect]
     Indication: HEPATITIS C
     Dosage: 150 MCG; QW; SC;  90 MCG; QW; SC
     Route: 058
     Dates: start: 20051121, end: 20060301
  2. PEG-INTRON [Suspect]
     Indication: HEPATITIS C
     Dosage: 150 MCG; QW; SC;  90 MCG; QW; SC
     Route: 058
     Dates: start: 20060301
  3. REBETOL [Suspect]
     Indication: HEPATITIS C
     Dosage: 600 MG; BID; PO
     Route: 048
     Dates: start: 20051121, end: 20060301
  4. REBETOL [Suspect]
     Indication: HEPATITIS C
     Dosage: 600 MG; BID; PO
     Route: 048
     Dates: start: 20060301
  5. SEROQUEL (CON) [Concomitant]
  6. TOPAMAX (CON.) [Concomitant]
  7. TRAZODONE HCI (CON.) [Concomitant]

REACTIONS (19)
  - ABDOMINAL PAIN [None]
  - ANXIETY [None]
  - CONFUSIONAL STATE [None]
  - DEHYDRATION [None]
  - DEPRESSION [None]
  - DRUG DEPENDENCE [None]
  - DRUG DOSE OMISSION [None]
  - DRUG INEFFECTIVE [None]
  - DYSPEPSIA [None]
  - FATIGUE [None]
  - HYPERSOMNIA [None]
  - INFLUENZA [None]
  - MUSCLE TIGHTNESS [None]
  - MYALGIA [None]
  - NAUSEA [None]
  - PSYCHIATRIC SYMPTOM [None]
  - SELF ESTEEM DECREASED [None]
  - TREATMENT NONCOMPLIANCE [None]
  - WHITE BLOOD CELL COUNT DECREASED [None]
